FAERS Safety Report 10611720 (Version 2)
Quarter: 2014Q4

REPORT INFORMATION
  Report Type: Spontaneous
  Country: IT (occurrence: IT)
  Receive Date: 20141126
  Receipt Date: 20141126
  Transmission Date: 20150529
  Serious: Yes (Hospitalization)
  Sender: FDA-Public Use
  Company Number: IT-PFIZER INC-2014213421

PATIENT
  Age: 62 Year
  Sex: Male
  Weight: 58 kg

DRUGS (14)
  1. SELOKEN [Concomitant]
     Active Substance: METOPROLOL
     Dosage: 100 MG, 50 TABLETS
     Route: 065
  2. ROCEFIN [Suspect]
     Active Substance: CEFTRIAXONE SODIUM
     Indication: BRONCHITIS
     Dosage: 1G/3.5 ML POWDER AND SOLVENT FOR INJECTABLE SOLUTION
     Route: 030
     Dates: start: 20140314, end: 20140324
  3. MONOKET [Concomitant]
     Active Substance: ISOSORBIDE MONONITRATE
     Dosage: 40MG AT 80 MG, 30 TABLETS, UNK
     Route: 048
  4. LUVION [Concomitant]
     Active Substance: CANRENONE
     Dosage: 50MG AT 50MG, 40 TABLETS, UNK
     Route: 065
  5. LEVOFLOXACIN. [Suspect]
     Active Substance: LEVOFLOXACIN
     Indication: BRONCHITIS
     Dosage: 500 MG, DAILY
     Route: 048
     Dates: start: 20140314, end: 20140324
  6. CARDIOASPIRIN [Concomitant]
     Active Substance: ASPIRIN
     Dosage: 100 MG, UNK
     Route: 048
  7. RANEXA [Concomitant]
     Active Substance: RANOLAZINE
     Dosage: 375 MG, UNK
     Route: 048
  8. MINITRAN [Concomitant]
     Active Substance: NITROGLYCERIN
     Dosage: 10 MG, PER 24 HRS
     Route: 062
  9. LASIX [Concomitant]
     Active Substance: FUROSEMIDE
     Dosage: 25 MG AT 25 MG, 30TABLETS, UNK
     Route: 065
  10. ZITHROMAX [Suspect]
     Active Substance: AZITHROMYCIN DIHYDRATE
     Indication: BRONCHITIS
     Dosage: 500 MG, DAILY
     Route: 048
     Dates: start: 20140325, end: 20140329
  11. ACICLOVIR [Concomitant]
     Active Substance: ACYCLOVIR
     Dosage: 800 MG, UNK
     Route: 065
  12. CALCIUM SANDOZ [Concomitant]
     Active Substance: CALCIUM
     Dosage: 500 MG, UNK
     Route: 065
  13. GLUCOPHAGE [Concomitant]
     Active Substance: METFORMIN HYDROCHLORIDE
     Dosage: 500MG AT 1000 MG, 30TABLETS, UNK
     Route: 065
  14. DELTACORTENE [Concomitant]
     Active Substance: PREDNISONE
     Dosage: 25 MG, 10 TABLETS, UNK
     Route: 065

REACTIONS (2)
  - Drug hypersensitivity [Unknown]
  - Purpura [Recovering/Resolving]

NARRATIVE: CASE EVENT DATE: 20140328
